FAERS Safety Report 4492201-1 (Version None)
Quarter: 2004Q4

REPORT INFORMATION
  Report Type: 
  Country: None (occurrence: None)
  Receive Date: 20041101
  Receipt Date: 20041026
  Transmission Date: 20050328
  Serious: Yes (Death)
  Sender: FDA-Public Use
  Company Number: USA-2004-0016518

PATIENT
  Age: 40 Year
  Sex: Male

DRUGS (6)
  1. OXYCONTIN [Suspect]
     Indication: PAIN
     Dosage: 30 MG, TID; 20 MG, TID
     Dates: start: 20040325, end: 20040820
  2. OXYCONTIN [Suspect]
     Indication: PAIN
     Dosage: 30 MG, TID; 20 MG, TID
     Dates: start: 20040820
  3. AMBIEN [Concomitant]
  4. SOMA (CARISOPROLOL) [Concomitant]
  5. NEURONTIN [Concomitant]
  6. XANAX [Concomitant]

REACTIONS (1)
  - DEATH [None]
